FAERS Safety Report 24321825 (Version 1)
Quarter: 2024Q3

REPORT INFORMATION
  Report Type: Spontaneous
  Country: US (occurrence: US)
  Receive Date: 20240916
  Receipt Date: 20240916
  Transmission Date: 20241016
  Serious: No
  Sender: ABBVIE
  Company Number: US-ABBVIE-5919306

PATIENT
  Age: 81 Year
  Sex: Female

DRUGS (1)
  1. VIIBRYD [Suspect]
     Active Substance: VILAZODONE HYDROCHLORIDE
     Indication: Major depression
     Route: 048
     Dates: start: 2023

REACTIONS (4)
  - Myalgia [Unknown]
  - Feeling abnormal [Unknown]
  - Therapeutic response shortened [Unknown]
  - Product colour issue [Unknown]

NARRATIVE: CASE EVENT DATE: 20240101
